FAERS Safety Report 8833045 (Version 1)
Quarter: 2012Q4

REPORT INFORMATION
  Report Type: 
  Country: US (occurrence: US)
  Receive Date: 20121010
  Receipt Date: 20121010
  Transmission Date: 20130627
  Serious: Yes (Other)
  Sender: FDA-Public Use
  Company Number: US-PFIZER INC-2012246617

PATIENT
  Age: 69 Year
  Sex: Female
  Weight: 72.6 kg

DRUGS (2)
  1. PREMARIN [Suspect]
     Dosage: UNK
     Route: 067
  2. ATENOLOL [Concomitant]
     Dosage: 12.5 mg, 1x/day

REACTIONS (1)
  - Bladder prolapse [Unknown]
